FAERS Safety Report 7919681-0 (Version None)
Quarter: 2011Q4

REPORT INFORMATION
  Report Type: 
  Country: None (occurrence: None)
  Receive Date: 20111117
  Receipt Date: 20111108
  Transmission Date: 20120403
  Serious: Yes (Other)
  Sender: FDA-Public Use
  Company Number: US-US-EMD SERONO, INC.-7094880

PATIENT
  Sex: Female

DRUGS (2)
  1. REBIF [Suspect]
     Indication: PRODUCT USED FOR UNKNOWN INDICATION
     Route: 058
     Dates: start: 20100811
  2. ARICEPT [Concomitant]
     Indication: COGNITIVE DISORDER

REACTIONS (6)
  - SENSATION OF HEAVINESS [None]
  - MICTURITION URGENCY [None]
  - INJECTION SITE ERYTHEMA [None]
  - DYSPHAGIA [None]
  - MUSCLE TIGHTNESS [None]
  - RALES [None]
